FAERS Safety Report 8406727-9 (Version None)
Quarter: 2012Q2

REPORT INFORMATION
  Report Type: 
  Country: None (occurrence: None)
  Receive Date: 20120604
  Receipt Date: 20120601
  Transmission Date: 20120825
  Serious: Yes (Death)
  Sender: FDA-Public Use
  Company Number: PHHY2012NL047214

PATIENT
  Sex: Male

DRUGS (2)
  1. ZOMETA [Suspect]
     Dosage: 4 MG/100ML, 1X PER 21 DAYS
     Route: 042
     Dates: start: 20120504
  2. ZOMETA [Suspect]
     Indication: PROSTATE CANCER METASTATIC
     Dosage: 4 MG/100ML, 1X PER 21 DAYS
     Route: 042
     Dates: start: 20110726

REACTIONS (1)
  - DEATH [None]
